FAERS Safety Report 8445597-X (Version None)
Quarter: 2012Q2

REPORT INFORMATION
  Report Type: 
  Country: None (occurrence: None)
  Receive Date: 20120618
  Receipt Date: 20120606
  Transmission Date: 20120825
  Serious: No
  Sender: FDA-Public Use
  Company Number: US-PFIZER INC-2012139620

PATIENT
  Sex: Female

DRUGS (3)
  1. LYRICA [Suspect]
     Indication: FIBROMYALGIA
     Dosage: UNK
  2. ENBREL [Suspect]
     Indication: RHEUMATOID ARTHRITIS
     Dosage: 50 MG, WEEKLY
  3. METHOTREXATE SODIUM [Suspect]
     Dosage: UNK

REACTIONS (4)
  - RASH [None]
  - HEPATIC ENZYME INCREASED [None]
  - ARTHRALGIA [None]
  - FIBROMYALGIA [None]
